FAERS Safety Report 20520167 (Version 1)
Quarter: 2022Q1

REPORT INFORMATION
  Report Type: Spontaneous
  Country: US (occurrence: None)
  Receive Date: 20220225
  Receipt Date: 20220225
  Transmission Date: 20220424
  Serious: Yes (Hospitalization, Other)
  Sender: FDA-Public Use
  Company Number: 2022A082066

PATIENT
  Age: 64 Year
  Sex: Female

DRUGS (9)
  1. BRILINTA [Suspect]
     Active Substance: TICAGRELOR
     Indication: Coronary artery disease
     Route: 048
  2. NITROGLYCERIN [Concomitant]
     Active Substance: NITROGLYCERIN
     Indication: Pain
     Dosage: AT A RATE OF 5 UG/MIN
     Route: 060
  3. ASPIRIN [Concomitant]
     Active Substance: ASPIRIN
     Dosage: LOADED WITH 324 MG
     Route: 048
  4. ASPIRIN [Concomitant]
     Active Substance: ASPIRIN
     Route: 048
  5. ATORVASTATIN [Concomitant]
     Active Substance: ATORVASTATIN
  6. LABETALOL [Concomitant]
     Active Substance: LABETALOL\LABETALOL HYDROCHLORIDE
     Route: 048
  7. CLOPIDOGREL [Concomitant]
     Active Substance: CLOPIDOGREL BISULFATE
  8. FUROSEMIDE [Concomitant]
     Active Substance: FUROSEMIDE
     Route: 042
  9. ADENOSINE [Concomitant]
     Active Substance: ADENOSINE
     Dosage: 140 UG/KG/MIN
     Route: 042

REACTIONS (10)
  - Coronary no-reflow phenomenon [Unknown]
  - Chest pain [Unknown]
  - Stenosis [Unknown]
  - Cardiac arrest [Unknown]
  - Ventricular hypertrophy [Unknown]
  - Diastolic dysfunction [Unknown]
  - Coronary artery disease [Unknown]
  - Aortic valve stenosis [Unknown]
  - Sinus arrest [Recovered/Resolved]
  - Ventricular asystole [Recovered/Resolved]
